FAERS Safety Report 7607102-7 (Version None)
Quarter: 2011Q3

REPORT INFORMATION
  Report Type: 
  Country: None (occurrence: None)
  Receive Date: 20110713
  Receipt Date: 20110713
  Transmission Date: 20111222
  Serious: Yes (Other)
  Sender: FDA-Public Use
  Company Number: PL-UCBSA-034506

PATIENT
  Sex: Female

DRUGS (8)
  1. SEREVENT [Concomitant]
     Indication: ASTHMA
     Dosage: PUFF; INHALATION
     Dates: start: 20080101
  2. DIOSMINA [Concomitant]
     Indication: VARICOSE VEIN
     Route: 048
     Dates: start: 20080101
  3. FOLIC ACID [Concomitant]
     Indication: PROPHYLAXIS
     Route: 048
     Dates: start: 20030101
  4. IBUPROFEN [Concomitant]
     Indication: RHEUMATOID ARTHRITIS
     Route: 048
     Dates: start: 20030101
  5. ENCORTON [Concomitant]
     Indication: RHEUMATOID ARTHRITIS
     Route: 048
     Dates: start: 20080101
  6. PAROXETINE HCL [Concomitant]
     Indication: DEPRESSION
     Route: 048
     Dates: start: 20100210
  7. METHOTREXATE [Concomitant]
     Indication: RHEUMATOID ARTHRITIS
     Route: 048
     Dates: start: 20030101
  8. CERTOLIZUMAB PEGOL [Suspect]
     Indication: RHEUMATOID ARTHRITIS
     Dosage: NO OF DOSES RECEIVED: 25
     Route: 058
     Dates: start: 20100330, end: 20110302

REACTIONS (1)
  - BASAL CELL CARCINOMA [None]
